FAERS Safety Report 13193166 (Version 4)
Quarter: 2017Q1

REPORT INFORMATION
  Report Type: Report from Study
  Country: US (occurrence: US)
  Receive Date: 20170207
  Receipt Date: 20170328
  Transmission Date: 20170428
  Serious: Yes (Other)
  Sender: FDA-Public Use
  Company Number: US-GILEAD-2017-0256378

PATIENT
  Age: 77 Year
  Sex: Female
  Weight: 83.45 kg

DRUGS (18)
  1. NITROGLYCERIN. [Concomitant]
     Active Substance: NITROGLYCERIN
  2. LASIX [Concomitant]
     Active Substance: FUROSEMIDE
  3. CYANOCOBALAMIN. [Concomitant]
     Active Substance: CYANOCOBALAMIN
  4. DIGOXIN. [Concomitant]
     Active Substance: DIGOXIN
  5. CALCIUM CARBONATE. [Concomitant]
     Active Substance: CALCIUM CARBONATE
  6. COZAAR [Concomitant]
     Active Substance: LOSARTAN POTASSIUM
  7. METOPROLOL TARTRATE. [Concomitant]
     Active Substance: METOPROLOL TARTRATE
  8. AMBRISENTAN [Suspect]
     Active Substance: AMBRISENTAN
     Indication: PULMONARY HYPERTENSION
     Dosage: 10 MG, QD
     Route: 065
     Dates: start: 20160302
  9. AMBRISENTAN [Suspect]
     Active Substance: AMBRISENTAN
     Indication: PULMONARY HYPERTENSION
  10. XARELTO [Concomitant]
     Active Substance: RIVAROXABAN
  11. ADCIRCA [Concomitant]
     Active Substance: TADALAFIL
  12. DILTIAZEM. [Concomitant]
     Active Substance: DILTIAZEM
  13. NITROSTAT [Concomitant]
     Active Substance: NITROGLYCERIN
  14. SYNTHROID [Concomitant]
     Active Substance: LEVOTHYROXINE SODIUM
  15. ASPIRIN                            /00002701/ [Concomitant]
     Active Substance: ASPIRIN
  16. FISH OIL [Concomitant]
     Active Substance: FISH OIL
  17. KLOR-CON [Concomitant]
     Active Substance: POTASSIUM CHLORIDE
  18. VITAMIN D3 [Concomitant]
     Active Substance: CHOLECALCIFEROL

REACTIONS (7)
  - Loss of consciousness [Recovered/Resolved]
  - Influenza [Recovered/Resolved]
  - Osteoarthritis [Recovered/Resolved]
  - Fall [Recovered/Resolved]
  - Decreased appetite [Recovered/Resolved]
  - Vomiting [Recovered/Resolved]
  - Weight decreased [Recovered/Resolved]

NARRATIVE: CASE EVENT DATE: 20161226
